FAERS Safety Report 23557585 (Version 1)
Quarter: 2024Q1

REPORT INFORMATION
  Report Type: Spontaneous
  Country: US (occurrence: US)
  Receive Date: 20240223
  Receipt Date: 20240223
  Transmission Date: 20240409
  Serious: No
  Sender: FDA-Public Use
  Company Number: US-MYLANLABS-2023M1086632

PATIENT
  Sex: Female
  Weight: 73.03 kg

DRUGS (1)
  1. SEMGLEE (INSULIN GLARGINE-YFGN) [Suspect]
     Active Substance: INSULIN GLARGINE-YFGN
     Indication: Type 2 diabetes mellitus
     Dosage: 12 INTERNATIONAL UNIT, QD A DAY,INJECTION
     Route: 058
     Dates: start: 20230517

REACTIONS (4)
  - Wrong technique in product usage process [Unknown]
  - Product communication issue [Unknown]
  - Device breakage [Unknown]
  - Product storage error [Unknown]
